FAERS Safety Report 5011151-5 (Version None)
Quarter: 2006Q2

REPORT INFORMATION
  Report Type: 
  Country: None (occurrence: None)
  Receive Date: 20060523
  Receipt Date: 20060512
  Transmission Date: 20061013
  Serious: Yes (Life-Threatening, Other)
  Sender: FDA-Public Use
  Company Number: HQWYE324312MAY06

PATIENT
  Age: 73 Year
  Sex: Male

DRUGS (3)
  1. CORDARONE [Suspect]
     Indication: VENTRICULAR EXTRASYSTOLES
     Dosage: 200 MG 1X PER 1 DAY ORAL
     Route: 048
     Dates: start: 20051101, end: 20060419
  2. LEVOBREN        (LEVOSULPIRIDE) [Suspect]
     Indication: ANOREXIA
     Dosage: 20 DROP 1X PER 1 DAY ORAL
     Route: 048
     Dates: start: 20060219, end: 20060419
  3. TAMOXIFEN CITRATE [Suspect]
     Indication: BREAST CANCER
     Dosage: 10 MG 1X PER 1 DAY ORAL
     Route: 048
     Dates: start: 20051101, end: 20060419

REACTIONS (2)
  - CIRCULATORY COLLAPSE [None]
  - TORSADE DE POINTES [None]
